FAERS Safety Report 7134565-6 (Version None)
Quarter: 2010Q4

REPORT INFORMATION
  Report Type: 
  Country: None (occurrence: None)
  Receive Date: 20101129
  Receipt Date: 20101129
  Transmission Date: 20110411
  Serious: Yes (Life-Threatening, Other)
  Sender: FDA-Public Use
  Company Number: None

PATIENT
  Sex: Male
  Weight: 88.905 kg

DRUGS (1)
  1. INVEGA [Suspect]
     Indication: MENTAL DISORDER
     Dosage: 1 6MG/DAY 1/DAY ORAL
     Route: 048
     Dates: start: 20101116

REACTIONS (6)
  - COUGH [None]
  - DIZZINESS [None]
  - DRUG INEFFECTIVE [None]
  - DRY MOUTH [None]
  - DYSPHAGIA [None]
  - SOMNOLENCE [None]
